FAERS Safety Report 4839031-6 (Version None)
Quarter: 2005Q4

REPORT INFORMATION
  Report Type: 
  Country: None (occurrence: None)
  Receive Date: 20051031
  Receipt Date: 20050825
  Transmission Date: 20060501
  Serious: No
  Sender: FDA-Public Use
  Company Number: 200516362US

PATIENT
  Age: 34 Year
  Sex: Female

DRUGS (1)
  1. KETEK [Suspect]
     Indication: EAR INFECTION
     Dosage: PO
     Route: 048
     Dates: start: 20040101, end: 20041201

REACTIONS (1)
  - VISION BLURRED [None]
